FAERS Safety Report 5628268-4 (Version None)
Quarter: 2008Q1

REPORT INFORMATION
  Report Type: 
  Country: None (occurrence: None)
  Receive Date: 20080215
  Receipt Date: 20080204
  Transmission Date: 20080703
  Serious: Yes (Other)
  Sender: FDA-Public Use
  Company Number: US-PFIZER INC-2007075637

PATIENT
  Sex: Female
  Weight: 75 kg

DRUGS (4)
  1. CHANTIX [Suspect]
     Indication: SMOKING CESSATION THERAPY
     Route: 048
  2. ALL OTHER THERAPEUTIC PRODUCTS [Suspect]
  3. ACIPHEX [Concomitant]
     Indication: GASTROOESOPHAGEAL REFLUX DISEASE
     Route: 048
  4. MIRALAX [Concomitant]

REACTIONS (13)
  - ANXIETY [None]
  - CONSTIPATION [None]
  - DYSPEPSIA [None]
  - EUPHORIC MOOD [None]
  - FATIGUE [None]
  - FLATULENCE [None]
  - GASTROOESOPHAGEAL REFLUX DISEASE [None]
  - MANIA [None]
  - MOUTH HAEMORRHAGE [None]
  - POOR QUALITY SLEEP [None]
  - RESPIRATORY DISORDER [None]
  - SKIN ODOUR ABNORMAL [None]
  - WITHDRAWAL SYNDROME [None]
